FAERS Safety Report 10855102 (Version 1)
Quarter: 2015Q1

REPORT INFORMATION
  Report Type: Spontaneous
  Country: US (occurrence: None)
  Receive Date: 20150218
  Receipt Date: 20150218
  Transmission Date: 20150721
  Serious: Yes (Other)
  Sender: FDA-Public Use
  Company Number: None

PATIENT
  Age: 43 Year
  Sex: Female
  Weight: 79.38 kg

DRUGS (1)
  1. DEPO-PROVERA [Suspect]
     Active Substance: MEDROXYPROGESTERONE ACETATE
     Indication: HIGH FREQUENCY ABLATION
     Dates: start: 20150114

REACTIONS (3)
  - Swelling face [None]
  - Urticaria [None]
  - Eye swelling [None]

NARRATIVE: CASE EVENT DATE: 20150114
